FAERS Safety Report 24028101 (Version 2)
Quarter: 2024Q3

REPORT INFORMATION
  Report Type: Report from Study
  Country: BR (occurrence: BR)
  Receive Date: 20240628
  Receipt Date: 20240708
  Transmission Date: 20241017
  Serious: Yes (Hospitalization, Other)
  Sender: CELLTRION
  Company Number: BR-CELLTRION INC.-2024BR015158

PATIENT

DRUGS (9)
  1. INFLIXIMAB [Suspect]
     Active Substance: INFLIXIMAB
     Indication: Crohn^s disease
     Dosage: 2.5 AMPOULES EVERY 8 WEEKS
     Route: 042
     Dates: start: 202211
  2. INFLIXIMAB [Suspect]
     Active Substance: INFLIXIMAB
     Dosage: 2.5 AMPOULES EVERY 6 WEEKS (WAS 2.5 AMPOULES EVERY 8 WEEKS)
     Route: 042
  3. INFLIXIMAB [Suspect]
     Active Substance: INFLIXIMAB
     Dosage: 3 LOADING DOSES (ALREADY TAKEN IN THE PREVIOUS MONTHS)
  4. INFLIXIMAB [Suspect]
     Active Substance: INFLIXIMAB
     Dosage: 3 LOADING DOSES (ALREADY TAKEN IN THE PREVIOUS MONTHS)
  5. INFLIXIMAB [Suspect]
     Active Substance: INFLIXIMAB
     Dosage: 3 LOADING DOSES (ALREADY TAKEN IN THE PREVIOUS MONTHS)
  6. MESALAMINE [Concomitant]
     Active Substance: MESALAMINE
     Indication: Rectal lesion
     Dosage: 1 G/ 2 SUPPOSITORIES A DAY
     Dates: start: 20240604
  7. MESALAMINE [Concomitant]
     Active Substance: MESALAMINE
     Indication: Crohn^s disease
     Dosage: 50 MG/ 8 PILLS A DAY
     Route: 048
     Dates: start: 2014
  8. AZATHIOPRINE [Concomitant]
     Active Substance: AZATHIOPRINE
     Indication: Crohn^s disease
     Dosage: 3 PILLS A DAY
     Route: 048
     Dates: start: 2014
  9. ESCITALOPRAM [Concomitant]
     Active Substance: ESCITALOPRAM OXALATE
     Indication: Product used for unknown indication
     Dosage: 1 PILL A DAY
     Route: 048
     Dates: start: 2010

REACTIONS (5)
  - Rectal lesion [Recovering/Resolving]
  - Sinusitis [Recovered/Resolved]
  - Intentional dose omission [Recovering/Resolving]
  - Therapy interrupted [Unknown]
  - Intentional product use issue [Unknown]

NARRATIVE: CASE EVENT DATE: 20240301
